FAERS Safety Report 21706789 (Version 3)
Quarter: 2023Q1

REPORT INFORMATION
  Report Type: Spontaneous
  Country: US (occurrence: US)
  Receive Date: 20221209
  Receipt Date: 20230103
  Transmission Date: 20230418
  Serious: Yes (Other)
  Sender: FDA-Public Use
  Company Number: US-PFIZER INC-2019303275

PATIENT
  Age: 84 Year
  Sex: Female

DRUGS (1)
  1. PREMARIN [Suspect]
     Active Substance: ESTROGENS, CONJUGATED
     Indication: Menopausal symptoms
     Dosage: UNK, 2X/WEEK [INSERT 0.5 APPLICATION(S) TWICE A WEEK BY VAGINAL]
     Route: 067

REACTIONS (5)
  - Cerebrovascular accident [Unknown]
  - Illiteracy [Unknown]
  - Memory impairment [Unknown]
  - Thinking abnormal [Unknown]
  - Off label use [Unknown]
